FAERS Safety Report 6672656-4 (Version None)
Quarter: 2010Q2

REPORT INFORMATION
  Report Type: 
  Country: None (occurrence: None)
  Receive Date: 20100408
  Receipt Date: 20100331
  Transmission Date: 20101027
  Serious: Yes (Death)
  Sender: FDA-Public Use
  Company Number: US-ROCHE-682497

PATIENT
  Sex: Female

DRUGS (1)
  1. XELODA [Suspect]
     Indication: BREAST CANCER
     Dosage: TWO WEEKS ON AND ONE WEEK OFF.
     Route: 048
     Dates: start: 20090225

REACTIONS (1)
  - MALIGNANT NEOPLASM PROGRESSION [None]
